FAERS Safety Report 7180186-9 (Version None)
Quarter: 2010Q4

REPORT INFORMATION
  Report Type: 
  Country: None (occurrence: None)
  Receive Date: 20101221
  Receipt Date: 20101211
  Transmission Date: 20110411
  Serious: Yes (Other)
  Sender: FDA-Public Use
  Company Number: CA-JNJCH-2010028632

PATIENT
  Age: 42 Year
  Sex: Male
  Weight: 95.3 kg

DRUGS (1)
  1. ULTRA STRENGTH ROLAIDS SOFTCHEW VANILLA [Suspect]
     Indication: DYSPEPSIA
     Dosage: TEXT:TWO TABLETS AT ONE TIME
     Route: 048
     Dates: start: 20101111, end: 20101128

REACTIONS (4)
  - PRODUCT QUALITY ISSUE [None]
  - TOOTH DISORDER [None]
  - TOOTH EXTRACTION [None]
  - TOOTH REPAIR [None]
